FAERS Safety Report 9617480 (Version 2)
Quarter: 2013Q4

REPORT INFORMATION
  Report Type: Spontaneous
  Country: US (occurrence: US)
  Receive Date: 20131011
  Receipt Date: 20131025
  Transmission Date: 20140711
  Serious: Yes (Hospitalization, Other)
  Sender: FDA-Public Use
  Company Number: US-ROCHE-1287885

PATIENT
  Age: 13 Year
  Sex: Female
  Weight: 39.95 kg

DRUGS (3)
  1. NUTROPIN [Suspect]
     Indication: TURNER^S SYNDROME
     Route: 058
     Dates: start: 20110222, end: 20130926
  2. NUTROPIN [Suspect]
     Indication: BODY HEIGHT BELOW NORMAL
  3. OXANDROLONE [Concomitant]
     Indication: TURNER^S SYNDROME
     Route: 048
     Dates: start: 20110222, end: 20130926

REACTIONS (1)
  - Epiphysiolysis [Recovered/Resolved]
